FAERS Safety Report 24461259 (Version 1)
Quarter: 2024Q4

REPORT INFORMATION
  Report Type: Report from Study
  Country: CA (occurrence: CA)
  Receive Date: 20241018
  Receipt Date: 20241018
  Transmission Date: 20250114
  Serious: No
  Sender: ROCHE
  Company Number: CA-ROCHE-3562190

PATIENT
  Age: 37 Year
  Sex: Female

DRUGS (5)
  1. RITUXAN [Suspect]
     Active Substance: RITUXIMAB
     Indication: Myositis
     Dosage: ON 29/DEC/2023, RECEIVED THE LAST DOSE OF RITUXAN? FREQUENCY TEXT:DAY 1, 15 PIR
     Route: 041
     Dates: start: 20200203
  2. PREDNISONE [Concomitant]
     Active Substance: PREDNISONE
  3. METAMUCIL [Concomitant]
     Active Substance: PLANTAGO SEED
  4. METOPROLOL [Concomitant]
     Active Substance: METOPROLOL
  5. MYCOPHENOLIC ACID [Concomitant]
     Active Substance: MYCOPHENOLIC ACID

REACTIONS (1)
  - Fungal infection [Unknown]

NARRATIVE: CASE EVENT DATE: 20231201
